FAERS Safety Report 7523687-3 (Version None)
Quarter: 2011Q2

REPORT INFORMATION
  Report Type: 
  Country: None (occurrence: None)
  Receive Date: 20110603
  Receipt Date: 20110601
  Transmission Date: 20111010
  Serious: Yes (Death, Disabling, Other)
  Sender: FDA-Public Use
  Company Number: US-AMGEN-QUU425121

PATIENT
  Age: 62 Year
  Sex: Male

DRUGS (1)
  1. NPLATE [Suspect]
     Indication: IDIOPATHIC THROMBOCYTOPENIC PURPURA
     Dosage: 3 A?G/KG, UNK
     Dates: start: 20081223, end: 20090406

REACTIONS (3)
  - THROMBOCYTOPENIA [None]
  - MYELODYSPLASTIC SYNDROME [None]
  - DRUG INEFFECTIVE [None]
